FAERS Safety Report 4586618-4 (Version None)
Quarter: 2005Q1

REPORT INFORMATION
  Report Type: 
  Country: None (occurrence: None)
  Receive Date: 20050218
  Receipt Date: 20040719
  Transmission Date: 20050727
  Serious: No
  Sender: FDA-Public Use
  Company Number: US-BRISTOL-MYERS SQUIBB COMPANY-12645222

PATIENT
  Age: 57 Year
  Sex: Male
  Weight: 77 kg

DRUGS (5)
  1. TAXOL [Suspect]
     Indication: LUNG NEOPLASM MALIGNANT
     Dosage: THERAPY REPORTED FROM JUNE 2004 TO SEPTEMBER 2004
     Route: 042
     Dates: start: 20040601, end: 20040901
  2. CARBOPLATIN [Suspect]
     Indication: LUNG NEOPLASM MALIGNANT
     Dosage: THERAPY REPORTED FROM JUNE 2004 TO SEPTEMBER 2004
     Route: 042
     Dates: start: 20040601, end: 20040901
  3. ATENOLOL (INV) [Concomitant]
  4. AVAPRO [Concomitant]
  5. SYNTHROID [Concomitant]

REACTIONS (1)
  - BLOOD GLUCOSE INCREASED [None]
